FAERS Safety Report 8506590-1 (Version None)
Quarter: 2012Q3

REPORT INFORMATION
  Report Type: 
  Country: None (occurrence: None)
  Receive Date: 20120712
  Receipt Date: 20120705
  Transmission Date: 20120928
  Serious: Yes (Hospitalization)
  Sender: FDA-Public Use
  Company Number: MX-BRISTOL-MYERS SQUIBB COMPANY-16743874

PATIENT
  Age: 67 Year
  Sex: Male
  Weight: 55 kg

DRUGS (3)
  1. CISPLATIN [Suspect]
     Indication: HEAD AND NECK CANCER
     Dosage: LAST DOSE:12JUN2012
     Route: 042
     Dates: start: 20120612
  2. ERBITUX [Suspect]
     Indication: HEAD AND NECK CANCER
     Dosage: REG2:250MG/M2,WKLY DAY1,D15,IV:28JUN2012-ONG.
     Route: 042
     Dates: start: 20120612
  3. FLUOROURACIL [Suspect]
     Indication: HEAD AND NECK CANCER
     Dosage: DAY 1-4, LAST DOSE:15JUN2012.
     Route: 042
     Dates: start: 20120612

REACTIONS (3)
  - MUCOSAL INFLAMMATION [None]
  - DEHYDRATION [None]
  - SUBCLAVIAN VEIN THROMBOSIS [None]
